FAERS Safety Report 7447077-7 (Version None)
Quarter: 2011Q2

REPORT INFORMATION
  Report Type: 
  Country: None (occurrence: None)
  Receive Date: 20110429
  Receipt Date: 20110209
  Transmission Date: 20111010
  Serious: No
  Sender: FDA-Public Use
  Company Number: US-ASTRAZENECA-2011SE07593

PATIENT
  Age: 77 Year
  Sex: Female

DRUGS (3)
  1. LOSARTAN POTASSIUM [Concomitant]
  2. GENERIC XANAX [Concomitant]
  3. NEXIUM [Suspect]
     Indication: GASTROOESOPHAGEAL REFLUX DISEASE
     Route: 048
     Dates: start: 20090101

REACTIONS (2)
  - ILL-DEFINED DISORDER [None]
  - COELIAC DISEASE [None]
